FAERS Safety Report 5051056-7 (Version None)
Quarter: 2006Q3

REPORT INFORMATION
  Report Type: 
  Country: None (occurrence: None)
  Receive Date: 20060714
  Receipt Date: 20060705
  Transmission Date: 20061208
  Serious: Yes (Other)
  Sender: FDA-Public Use
  Company Number: PHBS2006GB10365

PATIENT
  Age: 44 Year
  Sex: Female

DRUGS (1)
  1. CARBAMAZEPINE [Suspect]
     Indication: FACIAL NEURALGIA
     Dosage: 500 MG/DAY
     Route: 065

REACTIONS (1)
  - COGNITIVE DISORDER [None]
